FAERS Safety Report 17307742 (Version 2)
Quarter: 2020Q1

REPORT INFORMATION
  Report Type: Spontaneous
  Country: IT (occurrence: IT)
  Receive Date: 20200123
  Receipt Date: 20200128
  Transmission Date: 20200409
  Serious: Yes (Hospitalization)
  Sender: FDA-Public Use
  Company Number: IT-SUN PHARMACEUTICAL INDUSTRIES LTD-2019RR-226392

PATIENT
  Age: 40 Year
  Sex: Female

DRUGS (3)
  1. CITALOPRAM [Suspect]
     Active Substance: CITALOPRAM HYDROBROMIDE
     Indication: DEPRESSION
     Dosage: 40 MILLIGRAMS, DAILY
     Route: 048
     Dates: start: 20190101, end: 20190502
  2. FLURAZEPAM MONOHYDROCHLORIDE [Suspect]
     Active Substance: FLURAZEPAM MONOHYDROCHLORIDE
     Indication: INSOMNIA
     Dosage: 60 MILLIGRAMS, DAILY
     Route: 048
     Dates: start: 20190101, end: 20190502
  3. VATRAN 5 MG COMPRESSE [Suspect]
     Active Substance: DIAZEPAM
     Indication: INSOMNIA
     Dosage: 15 MILLIGRAMS, DAILY
     Route: 048
     Dates: start: 20190101, end: 20190502

REACTIONS (1)
  - Psychomotor hyperactivity [Recovered/Resolved]

NARRATIVE: CASE EVENT DATE: 20190504
